FAERS Safety Report 6436915-2 (Version None)
Quarter: 2009Q4

REPORT INFORMATION
  Report Type: 
  Country: None (occurrence: None)
  Receive Date: 20091109
  Receipt Date: 20091102
  Transmission Date: 20100525
  Serious: Yes (Death)
  Sender: FDA-Public Use
  Company Number: 423370

PATIENT
  Age: 63 Year
  Sex: Female

DRUGS (3)
  1. PACLITAXEL [Suspect]
     Indication: BREAST CANCER METASTATIC
     Dosage: 90 MG/M^2 ON DAYS 1, 8, 15 OVER 28 DAYS
  2. (BEVACIZUMAB) [Suspect]
     Indication: BREAST CANCER METASTATIC
     Dosage: 10 MG/M^2 ON DAYS 1 AND 15 OVER 28 DAYS
  3. HEPARIN [Concomitant]

REACTIONS (5)
  - INTESTINAL PERFORATION [None]
  - METASTASES TO ABDOMINAL WALL [None]
  - METASTASES TO SMALL INTESTINE [None]
  - PERITONITIS [None]
  - SEPTIC SHOCK [None]
